FAERS Safety Report 6383604-9 (Version None)
Quarter: 2009Q4

REPORT INFORMATION
  Report Type: 
  Country: None (occurrence: None)
  Receive Date: 20091001
  Receipt Date: 20090923
  Transmission Date: 20100525
  Serious: Yes (Death, Hospitalization)
  Sender: FDA-Public Use
  Company Number: DE-ROCHE-659079

PATIENT
  Age: 74 Year
  Weight: 70 kg

DRUGS (3)
  1. CAPECITABINE [Suspect]
     Indication: DRUG USE FOR UNKNOWN INDICATION
     Route: 065
     Dates: start: 20090507, end: 20090604
  2. AVASTIN [Concomitant]
     Dosage: GIVEN ON DAY ONE OF EACH CYCLE (PATIENT RECEIVED TWO CYCLES).
     Dates: start: 20090507
  3. OXALIPLATIN [Concomitant]
     Dosage: GIVEN ON DAYS 1+8 OF EACH CYCLE (PATIENT RECEIVED TWO CYCLES).
     Dates: start: 20090507

REACTIONS (4)
  - GENERAL PHYSICAL HEALTH DETERIORATION [None]
  - INFECTION [None]
  - MULTI-ORGAN FAILURE [None]
  - VOMITING [None]
